FAERS Safety Report 12674850 (Version 8)
Quarter: 2018Q4

REPORT INFORMATION
  Report Type: Report from Study
  Country: US (occurrence: US)
  Receive Date: 20160822
  Receipt Date: 20181109
  Transmission Date: 20190204
  Serious: Yes (Hospitalization)
  Sender: FDA-Public Use
  Company Number: US-EISAI MEDICAL RESEARCH-E7080-01542-CLI-US

PATIENT
  Age: 65 Year
  Sex: Male
  Weight: 78 kg

DRUGS (31)
  1. LENVATINIB [Suspect]
     Active Substance: LENVATINIB
     Route: 048
     Dates: start: 20131111, end: 20140710
  2. LENVATINIB [Suspect]
     Active Substance: LENVATINIB
     Route: 048
     Dates: start: 20150626, end: 20150803
  3. LENVATINIB [Suspect]
     Active Substance: LENVATINIB
     Route: 048
     Dates: start: 20151125, end: 20160510
  4. IBUPROFEN. [Concomitant]
     Active Substance: IBUPROFEN
  5. MIRALAX [Concomitant]
     Active Substance: POLYETHYLENE GLYCOL 3350
  6. RANEXA [Concomitant]
     Active Substance: RANOLAZINE
  7. SIMETHICONE (DIMETHICONE) [Concomitant]
     Active Substance: DIMETHICONE
  8. CENTRUM SILVER [Concomitant]
     Active Substance: MINERALS\VITAMINS
  9. METOPROLOL. [Concomitant]
     Active Substance: METOPROLOL
  10. OMEGA-3-ACID ETHYL ESTER [Concomitant]
     Active Substance: OMEGA-3-ACID ETHYL ESTERS
  11. PRILOSEC [Concomitant]
     Active Substance: OMEPRAZOLE MAGNESIUM
  12. ALLEGRA [Concomitant]
     Active Substance: FEXOFENADINE HYDROCHLORIDE
  13. IMODIUM [Concomitant]
     Active Substance: LOPERAMIDE HYDROCHLORIDE
  14. CARAFATE [Concomitant]
     Active Substance: SUCRALFATE
  15. LENVATINIB [Suspect]
     Active Substance: LENVATINIB
     Route: 048
     Dates: start: 20140804, end: 20150429
  16. LENVATINIB [Suspect]
     Active Substance: LENVATINIB
     Route: 048
     Dates: start: 20150914, end: 20151116
  17. AMLODIPINE [Concomitant]
     Active Substance: AMLODIPINE BESYLATE
  18. CHONDROITIN GLUCOSAMINE [Concomitant]
  19. DOCUSATE SODIUM. [Concomitant]
     Active Substance: DOCUSATE SODIUM
  20. LENVATINIB [Suspect]
     Active Substance: LENVATINIB
     Route: 048
     Dates: start: 20160623, end: 20160809
  21. CIALIS [Concomitant]
     Active Substance: TADALAFIL
  22. ASPIRIN. [Concomitant]
     Active Substance: ASPIRIN
  23. LENVATINIB [Suspect]
     Active Substance: LENVATINIB
     Indication: THYROID CANCER
     Route: 048
     Dates: start: 20120920, end: 20130528
  24. LENVATINIB [Suspect]
     Active Substance: LENVATINIB
     Route: 048
     Dates: start: 20160813, end: 20170202
  25. CITRICAL [Concomitant]
     Active Substance: CALCIUM CITRATE
  26. LENVATINIB [Suspect]
     Active Substance: LENVATINIB
     Route: 048
     Dates: start: 20130604, end: 20131022
  27. LENVATINIB [Suspect]
     Active Substance: LENVATINIB
     Route: 048
     Dates: start: 20150814, end: 20150907
  28. LENVATINIB [Suspect]
     Active Substance: LENVATINIB
     Route: 048
     Dates: start: 20160523, end: 20160614
  29. LEXAPRO [Concomitant]
     Active Substance: ESCITALOPRAM OXALATE
  30. CALCIUM CITRATE/VITAMIN D [Concomitant]
     Active Substance: CALCIUM CITRATE\VITAMIN D
  31. XARELTO [Concomitant]
     Active Substance: RIVAROXABAN

REACTIONS (4)
  - Abdominal pain [Recovered/Resolved]
  - Abdominal mass [Recovered/Resolved]
  - Cholecystitis [Recovered/Resolved]
  - Non-cardiac chest pain [Recovered/Resolved]

NARRATIVE: CASE EVENT DATE: 20140718
